FAERS Safety Report 22230310 (Version 1)
Quarter: 2023Q2

REPORT INFORMATION
  Report Type: Report from Study
  Country: US (occurrence: US)
  Receive Date: 20230419
  Receipt Date: 20230419
  Transmission Date: 20230722
  Serious: Yes (Death, Other)
  Sender: FDA-Public Use
  Company Number: US-ABBVIE-4734400

PATIENT

DRUGS (1)
  1. LUPRON [Suspect]
     Active Substance: LEUPROLIDE ACETATE
     Indication: Product used for unknown indication
     Route: 030

REACTIONS (5)
  - Death [Fatal]
  - Tooth loss [Unknown]
  - Alopecia [Unknown]
  - Eye injury [Unknown]
  - Multiple organ dysfunction syndrome [Unknown]
